FAERS Safety Report 13665781 (Version 7)
Quarter: 2023Q2

REPORT INFORMATION
  Report Type: Spontaneous
  Country: JP (occurrence: JP)
  Receive Date: 20170619
  Receipt Date: 20230502
  Transmission Date: 20230722
  Serious: Yes (Hospitalization, Other)
  Sender: FDA-Public Use
  Company Number: JP-BAYER-2017-106592

PATIENT
  Age: 68 Year
  Sex: Male
  Weight: 63.2 kg

DRUGS (16)
  1. XOFIGO [Suspect]
     Active Substance: RADIUM RA-223 DICHLORIDE
     Indication: Prostate cancer stage IV
     Dosage: 1DF, ONCE, 55 KBG/KG?
     Route: 042
     Dates: start: 20170310, end: 20170310
  2. XOFIGO [Suspect]
     Active Substance: RADIUM RA-223 DICHLORIDE
     Indication: Metastases to bone
     Dosage: 1DF, ONCE, 55 KBG/KG?
     Route: 042
     Dates: start: 20170407, end: 20170407
  3. XOFIGO [Suspect]
     Active Substance: RADIUM RA-223 DICHLORIDE
     Indication: Hormone-refractory prostate cancer
     Dosage: 1DF, ONCE, 55 KBG/KG?
     Route: 042
     Dates: start: 20170512, end: 20170512
  4. XOFIGO [Suspect]
     Active Substance: RADIUM RA-223 DICHLORIDE
     Indication: Prostate cancer stage IV
     Dosage: 1DF, ONCE, 55 KBG/KG?
     Route: 042
     Dates: start: 20170601, end: 20170601
  5. ENZALUTAMIDE [Suspect]
     Active Substance: ENZALUTAMIDE
     Indication: Prostate cancer stage IV
     Dosage: UNK
     Route: 048
     Dates: start: 2016
  6. ENZALUTAMIDE [Suspect]
     Active Substance: ENZALUTAMIDE
     Indication: Metastases to bone
  7. ENZALUTAMIDE [Suspect]
     Active Substance: ENZALUTAMIDE
     Indication: Hormone-refractory prostate cancer
  8. SUPER CAL600-MG300 [Concomitant]
     Indication: Prophylaxis
     Dosage: 2 DF, UNK
     Route: 048
  9. XTANDI [Concomitant]
     Active Substance: ENZALUTAMIDE
     Indication: Prostate cancer stage IV
     Dosage: DAILY DOSE 160 MG
     Route: 048
     Dates: start: 20160527
  10. XTANDI [Concomitant]
     Active Substance: ENZALUTAMIDE
     Indication: Metastases to bone
  11. MIRABEGRON [Concomitant]
     Active Substance: MIRABEGRON
     Indication: Micturition urgency
     Dosage: DAILY DOSE 50 MG
     Route: 048
  12. MAGNESIUM OXIDE [Concomitant]
     Active Substance: MAGNESIUM OXIDE
     Indication: Constipation
     Dosage: DAILY DOSE 990 MG
     Route: 048
  13. LOXOPROFEN SODIUM [Concomitant]
     Active Substance: LOXOPROFEN SODIUM
     Indication: Pain
     Dosage: DAILY DOSE 120 MG
     Route: 048
  14. TEPRENONE [Concomitant]
     Active Substance: TEPRENONE
     Indication: Pain prophylaxis
     Dosage: DAILY DOSE 100 MG
     Route: 048
  15. AZITHROMYCIN [Concomitant]
     Active Substance: AZITHROMYCIN
  16. CEFTRIAXONE [Concomitant]
     Active Substance: CEFTRIAXONE

REACTIONS (9)
  - Metastases to liver [Unknown]
  - Oedema [Not Recovered/Not Resolved]
  - Haemoglobin decreased [Not Recovered/Not Resolved]
  - Anaemia [Not Recovered/Not Resolved]
  - Malaise [Not Recovered/Not Resolved]
  - Dyspnoea [Not Recovered/Not Resolved]
  - Interstitial lung disease [Not Recovered/Not Resolved]
  - Platelet count decreased [Not Recovered/Not Resolved]
  - Neutrophil count decreased [Unknown]

NARRATIVE: CASE EVENT DATE: 20170601
